FAERS Safety Report 9002615 (Version 1)
Quarter: 2013Q1

REPORT INFORMATION
  Report Type: Not Available
  Country: FR (occurrence: FR)
  Receive Date: 20130107
  Receipt Date: 20130107
  Transmission Date: 20140127
  Serious: Yes (Hospitalization)
  Sender: FDA-Public Use
  Company Number: FR-ASTELLAS-2012EU010375

PATIENT
  Age: 31 Year
  Sex: Female

DRUGS (7)
  1. PROGRAF [Suspect]
     Indication: LUNG TRANSPLANT
     Dosage: 2.5 MG, BID
     Route: 065
     Dates: start: 20110915, end: 20121019
  2. MYFORTIC [Suspect]
     Indication: LUNG TRANSPLANT
     Dosage: 360 MG, BID
     Route: 065
     Dates: start: 20110915
  3. CORTANCYL [Concomitant]
     Dosage: 5 MG, UNKNOWN/D
     Route: 065
  4. TARDYFERON [Concomitant]
     Dosage: UNK
     Route: 065
  5. INEXIUM                            /01479303/ [Concomitant]
     Dosage: UNK
     Route: 065
  6. ACTONEL [Concomitant]
     Dosage: UNK
     Route: 065
  7. CACIT D3 [Concomitant]
     Dosage: UNK
     Route: 065

REACTIONS (4)
  - Agranulocytosis [Recovered/Resolved]
  - Neutropenia [Recovered/Resolved]
  - Pyrexia [Recovered/Resolved]
  - Condition aggravated [Recovered/Resolved]
